FAERS Safety Report 22523335 (Version 1)
Quarter: 2023Q2

REPORT INFORMATION
  Report Type: Report from Study
  Country: US (occurrence: US)
  Receive Date: 20230606
  Receipt Date: 20230606
  Transmission Date: 20230722
  Serious: Yes (Other)
  Sender: FDA-Public Use
  Company Number: US-ABBVIE-5275877

PATIENT
  Age: 53 Year
  Sex: Male

DRUGS (1)
  1. HUMIRA [Suspect]
     Active Substance: ADALIMUMAB
     Indication: Rheumatoid arthritis
     Dosage: CITRATE FREE,?FORM STRENGTH: 40 MILLIGRAM
     Route: 058

REACTIONS (5)
  - Cerebral disorder [Recovering/Resolving]
  - Rheumatoid arthritis [Unknown]
  - Loss of consciousness [Unknown]
  - Headache [Unknown]
  - Mental disorder [Unknown]

NARRATIVE: CASE EVENT DATE: 20230502
